FAERS Safety Report 8069119-0 (Version None)
Quarter: 2012Q1

REPORT INFORMATION
  Report Type: 
  Country: None (occurrence: None)
  Receive Date: 20120125
  Receipt Date: 20111108
  Transmission Date: 20120608
  Serious: Yes (Other)
  Sender: FDA-Public Use
  Company Number: CA-JNJFOC-20120108226

PATIENT
  Sex: Male
  Weight: 116 kg

DRUGS (15)
  1. LIPITOR [Concomitant]
     Route: 065
  2. DIOVAN [Concomitant]
     Route: 065
  3. NAPROXEN [Concomitant]
     Route: 065
  4. MESALAMINE [Concomitant]
     Route: 065
  5. METFORMIN HCL [Concomitant]
     Route: 065
  6. MAGLUCATE [Concomitant]
     Route: 065
  7. PLAVIX [Concomitant]
     Route: 065
  8. REMICADE [Suspect]
     Indication: CROHN'S DISEASE
     Route: 042
     Dates: start: 20100526
  9. VITAMIN D [Concomitant]
     Route: 065
  10. COLACE [Concomitant]
     Route: 065
  11. DILAUDID [Concomitant]
     Route: 065
  12. SENOKOT [Concomitant]
     Route: 065
  13. CITALOPRAM [Concomitant]
     Route: 065
  14. PANTOPRAZOLE [Concomitant]
     Route: 065
  15. INSULIN NOVORAPID [Concomitant]
     Route: 065

REACTIONS (2)
  - LOSS OF CONSCIOUSNESS [None]
  - HEADACHE [None]
